FAERS Safety Report 8957011 (Version 1)
Quarter: 2012Q4

REPORT INFORMATION
  Report Type: 
  Country: CH (occurrence: CH)
  Receive Date: 20121210
  Receipt Date: 20121210
  Transmission Date: 20130627
  Serious: Yes (Death, Hospitalization)
  Sender: FDA-Public Use
  Company Number: CH-ROCHE-1165233

PATIENT
  Age: 75 Year
  Sex: Male

DRUGS (17)
  1. TOREM [Suspect]
     Indication: PRODUCT USED FOR UNKNOWN INDICATION
     Route: 048
     Dates: start: 20101123, end: 20120930
  2. SOLIAN [Suspect]
     Indication: PRODUCT USED FOR UNKNOWN INDICATION
     Route: 048
     Dates: start: 201105, end: 20121003
  3. SOLIAN [Suspect]
     Route: 065
     Dates: start: 20121004, end: 20121011
  4. SOLIAN [Suspect]
     Route: 065
     Dates: start: 20121012, end: 20121016
  5. SOLIAN [Suspect]
     Route: 065
     Dates: start: 20121017
  6. DISTRANEURIN [Suspect]
     Indication: PRODUCT USED FOR UNKNOWN INDICATION
     Route: 048
     Dates: start: 20110920, end: 20121010
  7. DISTRANEURIN [Suspect]
     Route: 048
     Dates: start: 20121011
  8. CITALOPRAM [Suspect]
     Indication: PRODUCT USED FOR UNKNOWN INDICATION
     Route: 065
     Dates: start: 20110321
  9. ALDACTONE [Suspect]
     Indication: PRODUCT USED FOR UNKNOWN INDICATION
     Route: 065
     Dates: start: 20101123, end: 20120930
  10. METOPROLOL SUCCINATE [Suspect]
     Indication: PRODUCT USED FOR UNKNOWN INDICATION
     Route: 048
     Dates: start: 20101011, end: 201210
  11. DETRUSITOL [Suspect]
     Indication: PRODUCT USED FOR UNKNOWN INDICATION
     Route: 048
     Dates: start: 20110104
  12. RAMIPRIL [Suspect]
     Indication: PRODUCT USED FOR UNKNOWN INDICATION
     Route: 048
     Dates: start: 20120618, end: 201210
  13. NEXIUM [Suspect]
     Indication: PRODUCT USED FOR UNKNOWN INDICATION
     Route: 048
     Dates: start: 20121103
  14. ASPIRIN CARDIO [Concomitant]
     Route: 048
     Dates: start: 20101011
  15. PRADIF [Concomitant]
     Route: 065
     Dates: start: 20121011, end: 201210
  16. LANTUS [Concomitant]
     Route: 030
     Dates: start: 20120618
  17. SIMVASTATIN [Concomitant]
     Route: 048
     Dates: start: 20101011

REACTIONS (6)
  - Lobar pneumonia [Fatal]
  - Confusional state [Fatal]
  - Hyperglycaemia [Fatal]
  - Balance disorder [Unknown]
  - Fall [Unknown]
  - Cardiac failure [Unknown]
